FAERS Safety Report 4499361-7 (Version None)
Quarter: 2004Q3

REPORT INFORMATION
  Report Type: 
  Country: None (occurrence: None)
  Receive Date: 20040928
  Receipt Date: 20040805
  Transmission Date: 20050211
  Serious: No
  Sender: FDA-Public Use
  Company Number: 04P-163-0269453-00

PATIENT
  Age: 51 Year
  Sex: Female
  Weight: 86.1834 kg

DRUGS (8)
  1. HUMIRA [Suspect]
     Indication: RHEUMATOID ARTHRITIS
     Dosage: 40 MG, 1 IN 2 WK, SUBCUTANEOUS
     Route: 058
     Dates: start: 20030101
  2. TRAMADOL HCL [Concomitant]
  3. GABAPENTIN [Concomitant]
  4. METHOTREXATE SODIUM [Concomitant]
  5. FOLIC ACID [Concomitant]
  6. QUINAPRIL HYDROCHLORIDE [Concomitant]
  7. ATORVASTATIN [Concomitant]
  8. ALAVERT [Concomitant]

REACTIONS (3)
  - CHEST PAIN [None]
  - PAIN IN EXTREMITY [None]
  - PRURITUS [None]
